FAERS Safety Report 8541182-X (Version None)
Quarter: 2012Q2

REPORT INFORMATION
  Report Type: 
  Country: None (occurrence: None)
  Receive Date: 20120412
  Receipt Date: 20081021
  Transmission Date: 20120825
  Serious: Yes (Other)
  Sender: FDA-Public Use
  Company Number: PHEH2008US11674

PATIENT
  Sex: Female

DRUGS (2)
  1. LISINOPRIL [Suspect]
     Indication: BLOOD PRESSURE INCREASED
     Dates: start: 20070801, end: 20080703
  2. AREDIA [Suspect]
     Dosage: INFUSION

REACTIONS (3)
  - ANAPHYLACTIC REACTION [None]
  - BONE DENSITY ABNORMAL [None]
  - BLOOD PRESSURE INCREASED [None]
